FAERS Safety Report 8047846-9 (Version None)
Quarter: 2012Q1

REPORT INFORMATION
  Report Type: 
  Country: None (occurrence: None)
  Receive Date: 20120116
  Receipt Date: 20120105
  Transmission Date: 20120608
  Serious: Yes (Death)
  Sender: FDA-Public Use
  Company Number: FR-TEVA-2011004516

PATIENT
  Sex: Female

DRUGS (5)
  1. LYTOS [Concomitant]
     Dates: start: 20110307
  2. DURAGESIC-100 [Concomitant]
     Dates: start: 20100402
  3. BENDAMUSTINE HCL [Suspect]
     Indication: MULTIPLE MYELOMA
     Route: 041
     Dates: start: 20110808
  4. VELCADE [Suspect]
     Indication: MULTIPLE MYELOMA
     Dates: start: 20110808, end: 20110808
  5. DEXAMETHASONE [Suspect]
     Indication: MULTIPLE MYELOMA
     Dates: start: 20110808, end: 20110808

REACTIONS (2)
  - DIARRHOEA [None]
  - DEHYDRATION [None]
